FAERS Safety Report 13647954 (Version 6)
Quarter: 2018Q2

REPORT INFORMATION
  Report Type: Spontaneous
  Country: FR (occurrence: FR)
  Receive Date: 20170613
  Receipt Date: 20180413
  Transmission Date: 20180711
  Serious: Yes (Disabling, Other)
  Sender: FDA-Public Use
  Company Number: FR-PFIZER INC-2017252927

PATIENT
  Age: 50 Year
  Sex: Female
  Weight: 84.99 kg

DRUGS (7)
  1. CELEBREX [Suspect]
     Active Substance: CELECOXIB
     Indication: ANKYLOSING SPONDYLITIS
     Dosage: 200 MG, DAILY
     Route: 048
     Dates: start: 201611, end: 20170425
  2. KARDEGIC [Interacting]
     Active Substance: ASPIRIN DL-LYSINE
     Dosage: 75 MG, DAILY
     Route: 048
  3. TAHOR [Concomitant]
     Active Substance: ATORVASTATIN CALCIUM
     Dosage: UNK
  4. NOVORAPID [Concomitant]
     Active Substance: INSULIN ASPART
     Dosage: UNK
  5. TRIATEC /00885601/ [Concomitant]
     Active Substance: RAMIPRIL
     Dosage: UNK
  6. NORSET [Concomitant]
     Active Substance: MIRTAZAPINE
     Dosage: UNK
  7. LEVOTHYROX [Concomitant]
     Active Substance: LEVOTHYROXINE
     Dosage: UNK

REACTIONS (2)
  - Vitreous haemorrhage [Not Recovered/Not Resolved]
  - Drug interaction [Unknown]

NARRATIVE: CASE EVENT DATE: 20161220
